FAERS Safety Report 9916473 (Version 1)
Quarter: 2014Q1

REPORT INFORMATION
  Report Type: Spontaneous
  Country: US (occurrence: None)
  Receive Date: 20140219
  Receipt Date: 20140219
  Transmission Date: 20141002
  Serious: Yes (Other)
  Sender: FDA-Public Use
  Company Number: 2192307

PATIENT
  Age: 80 Year
  Sex: Female

DRUGS (4)
  1. VINCRISTINE SULFATE [Suspect]
     Indication: DIFFUSE LARGE B-CELL LYMPHOMA STAGE II
     Dosage: DAILY DOSE NOT REPORTED (UNKNOWN)
  2. RITUXIMAB [Suspect]
     Indication: LYMPHOMA
     Dosage: DAILY DOSE NOT REPORTED (UNKNOWN)
  3. CYCLOPHOSPHAMIDE [Suspect]
     Indication: LYMPHOMA
     Dosage: DAILY DOSE NOT REPORTED (UNKNOWN)
  4. PREDNISOLONE [Suspect]
     Indication: LYMPHOMA
     Dosage: DAILY DOSE NOT REPORTED (UNKNOWN)

REACTIONS (5)
  - Angiopathy [None]
  - Soft tissue necrosis [None]
  - Tracheal injury [None]
  - Weaning failure [None]
  - Procedural complication [None]
